FAERS Safety Report 6881426-3 (Version None)
Quarter: 2010Q3

REPORT INFORMATION
  Report Type: 
  Country: None (occurrence: None)
  Receive Date: 20100728
  Receipt Date: 20100728
  Transmission Date: 20110219
  Serious: Yes (Other)
  Sender: FDA-Public Use
  Company Number: None

PATIENT
  Age: 58 Year
  Sex: Female
  Weight: 101.6057 kg

DRUGS (18)
  1. VANCOMYCIN [Suspect]
     Indication: ARTHRITIS BACTERIAL
     Dosage: 1000MG EVERY 12 HOURS IV DRIP
     Route: 041
     Dates: start: 20100628, end: 20100714
  2. VANCOMYCIN [Suspect]
     Indication: KNEE ARTHROPLASTY
     Dosage: 1000MG EVERY 12 HOURS IV DRIP
     Route: 041
     Dates: start: 20100628, end: 20100714
  3. VANCOMYCIN [Suspect]
  4. POTASSIUM CHLORIDE [Concomitant]
  5. OMEPRAZOLE [Concomitant]
  6. MAXZIDE [Concomitant]
  7. LASIX [Concomitant]
  8. CELEXA [Concomitant]
  9. FISH OIL [Concomitant]
  10. IBUPROFEN TABLETS [Concomitant]
  11. XANAX [Concomitant]
  12. AMBIEN [Concomitant]
  13. TOPROL-XL [Concomitant]
  14. LODRANE SA [Concomitant]
  15. ADIPEX-P [Concomitant]
  16. LORTAB [Concomitant]
  17. ASPIRIN [Concomitant]
  18. RIFAMPIN [Concomitant]

REACTIONS (1)
  - WHITE BLOOD CELL COUNT DECREASED [None]
